FAERS Safety Report 7217148-9 (Version None)
Quarter: 2011Q1

REPORT INFORMATION
  Report Type: 
  Country: None (occurrence: None)
  Receive Date: 20110110
  Receipt Date: 20110104
  Transmission Date: 20110831
  Serious: Yes (Other)
  Sender: FDA-Public Use
  Company Number: US-JNJFOC-20101206913

PATIENT
  Sex: Male

DRUGS (1)
  1. MOTRIN IB [Suspect]
     Indication: PAIN
     Dosage: 400-800MG FROM 1996 AND 1997 UNTIL JAN 2006.
     Route: 048

REACTIONS (4)
  - HYPERTENSION [None]
  - RENAL DISORDER [None]
  - WEIGHT INCREASED [None]
  - BARRETT'S OESOPHAGUS [None]
